FAERS Safety Report 5007902-6 (Version None)
Quarter: 2006Q2

REPORT INFORMATION
  Report Type: 
  Country: None (occurrence: None)
  Receive Date: 20060517
  Receipt Date: 20060504
  Transmission Date: 20061013
  Serious: Yes (Death)
  Sender: FDA-Public Use
  Company Number: 2005162092

PATIENT
  Sex: Male

DRUGS (1)
  1. BEXTRA [Suspect]
     Indication: ILL-DEFINED DISORDER
     Dosage: ORAL
     Route: 048

REACTIONS (5)
  - ARTERIOSCLEROSIS [None]
  - CARDIAC ARREST [None]
  - CORONARY ARTERY STENOSIS [None]
  - FALL [None]
  - HYPERTENSION [None]
